FAERS Safety Report 5497664-0 (Version None)
Quarter: 2007Q4

REPORT INFORMATION
  Report Type: 
  Country: None (occurrence: None)
  Receive Date: 20071025
  Receipt Date: 20070419
  Transmission Date: 20080405
  Serious: No
  Sender: FDA-Public Use
  Company Number: A0637992A

PATIENT
  Age: 23 Year
  Sex: Female
  Weight: 64.1 kg

DRUGS (5)
  1. ADVAIR DISKUS 100/50 [Suspect]
     Indication: ASTHMA
     Dosage: 1PUFF TWICE PER DAY
     Route: 055
     Dates: start: 20070128, end: 20070201
  2. BIRTH CONTROL [Concomitant]
  3. SINGULAIR [Concomitant]
  4. ALBUTEROL SULFATE [Concomitant]
  5. XOPENEX [Concomitant]

REACTIONS (1)
  - MIGRAINE [None]
